FAERS Safety Report 9949750 (Version 2)
Quarter: 2014Q2

REPORT INFORMATION
  Report Type: Spontaneous
  Country: US (occurrence: US)
  Receive Date: 20140304
  Receipt Date: 20140424
  Transmission Date: 20141212
  Serious: No
  Sender: FDA-Public Use
  Company Number: US-PFIZER INC-2014059524

PATIENT
  Age: 71 Year
  Sex: Female

DRUGS (17)
  1. LYRICA [Suspect]
     Dosage: 150 MG, 3X/DAY
  2. LYRICA [Suspect]
     Dosage: 150 MG, 2X/DAY
  3. PROTONIX [Suspect]
     Dosage: 40 MG, 1X/DAY
  4. ELAVIL [Concomitant]
     Dosage: 100 MG, UNK
  5. COMBIVENT [Concomitant]
     Dosage: UNK, INHALER
     Route: 045
  6. ASPIRIN [Concomitant]
     Dosage: 81 MG, 1X/DAY (QD)
  7. BETHANECHOL [Concomitant]
     Indication: DYSURIA
     Dosage: 10 MG, 3X/DAY
  8. VITAMIN D [Concomitant]
     Dosage: 32000 IU, 2X/DAY
  9. COREG [Concomitant]
     Dosage: 12.5 MG, 2X/DAY
  10. FLOVENT [Concomitant]
     Dosage: UNK, 2X/DAY (44 MCG INHALER 2 PUFFS BID)
     Route: 045
  11. FUROSEMIDE [Concomitant]
     Dosage: 20 MG, 1X/DAY (QD)
  12. CELEXA [Concomitant]
     Dosage: 40 MG, 1X/DAY (QD)
  13. HYDROCODONE [Concomitant]
     Indication: PAIN
     Dosage: UNK, AS NEEDED (10/500 ONE TAB EVERY 4 HRS AS NEEDED)
  14. CLONAZEPAM [Concomitant]
     Dosage: 0.5 MG, 4X/DAY (1 TAB QID, MAY TAKE 2 AT BEDTIME)
  15. ACETAMINOPHEN [Concomitant]
     Dosage: 500 MG, UNK
  16. LISINOPRIL [Concomitant]
     Dosage: 40 MG, 1X/DAY (1 TAB AM)
  17. PRO-AIR [Concomitant]
     Dosage: UNK, 1X/DAY (2 PUFFS PM)

REACTIONS (2)
  - Pain [Unknown]
  - Micturition disorder [Unknown]
